FAERS Safety Report 5822470-4 (Version None)
Quarter: 2008Q3

REPORT INFORMATION
  Report Type: 
  Country: None (occurrence: None)
  Receive Date: 20080725
  Receipt Date: 20080201
  Transmission Date: 20090109
  Serious: No
  Sender: FDA-Public Use
  Company Number: US-AMGEN-KDL263580

PATIENT
  Sex: Female

DRUGS (14)
  1. EPOGEN [Suspect]
     Indication: RENAL FAILURE CHRONIC
     Dates: end: 20080102
  2. ROBAXIN [Concomitant]
  3. RENAGEL [Concomitant]
  4. PHOSLO [Concomitant]
  5. OSTEOBIFLEX [Concomitant]
  6. ALPRAZOLAM [Concomitant]
  7. NEPHRO-VITE [Concomitant]
  8. MAGNESIUM [Concomitant]
  9. LOPRESSOR [Concomitant]
  10. PREMARIN [Concomitant]
  11. PROTONIX [Concomitant]
  12. ASPIRIN [Concomitant]
  13. ZEMPLAR [Concomitant]
  14. VENOFER [Concomitant]

REACTIONS (2)
  - BLOOD ALUMINIUM ABNORMAL [None]
  - THERAPEUTIC RESPONSE DECREASED [None]
